FAERS Safety Report 20525706 (Version 1)
Quarter: 2022Q1

REPORT INFORMATION
  Report Type: Spontaneous
  Country: BR (occurrence: BR)
  Receive Date: 20220228
  Receipt Date: 20220228
  Transmission Date: 20220423
  Serious: Yes (Hospitalization, Other)
  Sender: FDA-Public Use
  Company Number: BR-LOTUS-2022-LOTUS-048640

PATIENT
  Age: 12 Year
  Sex: Female

DRUGS (1)
  1. METHOTREXATE [Suspect]
     Active Substance: METHOTREXATE
     Indication: Erythrodermic psoriasis
     Dosage: ONE YEAR AND FIVE MONTHS BEFORE

REACTIONS (3)
  - Varicella zoster virus infection [Recovering/Resolving]
  - Periorbital cellulitis [Recovering/Resolving]
  - Febrile neutropenia [Recovered/Resolved]
